FAERS Safety Report 5062183-2 (Version None)
Quarter: 2006Q3

REPORT INFORMATION
  Report Type: 
  Country: None (occurrence: None)
  Receive Date: 20060721
  Receipt Date: 20060712
  Transmission Date: 20061208
  Serious: Yes (Death, Hospitalization)
  Sender: FDA-Public Use
  Company Number: A-CH2006-12519

PATIENT
  Age: 71 Year
  Sex: Female
  Weight: 66 kg

DRUGS (17)
  1. TRACLEER [Suspect]
     Indication: PULMONARY HYPERTENSION
     Dosage: 125 MG, BID, ORAL; SEE IMAGE
     Route: 048
     Dates: start: 20040120, end: 20040219
  2. TRACLEER [Suspect]
     Indication: PULMONARY HYPERTENSION
     Dosage: 125 MG, BID, ORAL; SEE IMAGE
     Route: 048
     Dates: start: 20040220, end: 20060624
  3. BUMETANIDE [Concomitant]
  4. SPIRONOLACTONE [Concomitant]
  5. RAMIPRIL [Concomitant]
  6. LANOXIN [Concomitant]
  7. ISOSORBIDE (ISOSORBIDE) [Concomitant]
  8. DEPONIT (GLYCERYL TRINITRATE) [Concomitant]
  9. INSPRA [Concomitant]
  10. ZOCOR [Concomitant]
  11. OMEPRAZOLE [Concomitant]
  12. THYROXIN (LEVOTHYROXINE SODIUM) [Concomitant]
  13. CALCICHEW (CALCIUM CARBONATE) [Concomitant]
  14. AMITRIPTYLINE (AMITRIPTYLINE) [Concomitant]
  15. PREDNISONE TAB [Concomitant]
  16. SOTALOL (SOTALOL) [Concomitant]
  17. ACTONEL [Concomitant]

REACTIONS (6)
  - CARDIAC ARREST [None]
  - CHRONIC OBSTRUCTIVE PULMONARY DISEASE [None]
  - CONDITION AGGRAVATED [None]
  - CYANOSIS [None]
  - FALL [None]
  - PNEUMONIA [None]
